FAERS Safety Report 19450170 (Version 1)
Quarter: 2021Q2

REPORT INFORMATION
  Report Type: Spontaneous
  Country: US (occurrence: US)
  Receive Date: 20210622
  Receipt Date: 20210622
  Transmission Date: 20210717
  Serious: No
  Sender: FDA-Public Use
  Company Number: NVSC2021US137894

PATIENT

DRUGS (1)
  1. MAYZENT [Suspect]
     Active Substance: SIPONIMOD
     Indication: MULTIPLE SCLEROSIS
     Dosage: UNK, QD (VIA MOUTH)
     Route: 048

REACTIONS (2)
  - Liver function test increased [Recovered/Resolved]
  - Hepatic enzyme increased [Recovered/Resolved]
